FAERS Safety Report 19184355 (Version 2)
Quarter: 2021Q2

REPORT INFORMATION
  Report Type: Spontaneous
  Country: BR (occurrence: BR)
  Receive Date: 20210427
  Receipt Date: 20210430
  Transmission Date: 20210717
  Serious: Yes (Hospitalization)
  Sender: FDA-Public Use
  Company Number: BR-GLAXOSMITHKLINE-BR2021AMR090504

PATIENT
  Age: 98 Year
  Sex: Female

DRUGS (1)
  1. RELVAR ELLIPTA [Suspect]
     Active Substance: FLUTICASONE FUROATE\VILANTEROL TRIFENATATE
     Indication: RESPIRATORY DISORDER
     Dosage: UNK

REACTIONS (4)
  - Urinary tract infection [Unknown]
  - Inspiratory capacity decreased [Unknown]
  - Product use issue [Unknown]
  - Social problem [Unknown]
